FAERS Safety Report 16781042 (Version 2)
Quarter: 2019Q4

REPORT INFORMATION
  Report Type: Spontaneous
  Country: CA (occurrence: CA)
  Receive Date: 20190906
  Receipt Date: 20191230
  Transmission Date: 20200122
  Serious: Yes (Other)
  Sender: FDA-Public Use
  Company Number: CA-PFIZER INC-2019380219

PATIENT
  Age: 59 Year
  Sex: Male

DRUGS (2)
  1. XELJANZ [Suspect]
     Active Substance: TOFACITINIB CITRATE
     Indication: COLITIS ULCERATIVE
     Dosage: 5 MG TWICE DAILY
     Route: 048
     Dates: start: 20190605
  2. PREDNISONE. [Concomitant]
     Active Substance: PREDNISONE
     Dosage: UNK
     Route: 065

REACTIONS (13)
  - Nephrolithiasis [Not Recovered/Not Resolved]
  - Renal disorder [Unknown]
  - Micturition urgency [Unknown]
  - Pyrexia [Not Recovered/Not Resolved]
  - Red blood cell count increased [Unknown]
  - Insulin resistance [Unknown]
  - Pain [Unknown]
  - Ureteric obstruction [Not Recovered/Not Resolved]
  - Drug ineffective [Unknown]
  - Renal pain [Not Recovered/Not Resolved]
  - Infection [Not Recovered/Not Resolved]
  - White blood cell count increased [Unknown]
  - Discomfort [Unknown]

NARRATIVE: CASE EVENT DATE: 2019
